FAERS Safety Report 13721705 (Version 1)
Quarter: 2017Q3

REPORT INFORMATION
  Report Type: Spontaneous
  Country: US (occurrence: US)
  Receive Date: 20170706
  Receipt Date: 20170706
  Transmission Date: 20171127
  Serious: Yes (Hospitalization)
  Sender: FDA-Public Use
  Company Number: None

PATIENT
  Age: 66 Year
  Sex: Female

DRUGS (7)
  1. CATAPRES [Concomitant]
     Active Substance: CLONIDINE HYDROCHLORIDE
  2. ENALAPRIL [Concomitant]
     Active Substance: ENALAPRIL
  3. AMLIDIPINE [Concomitant]
  4. GLYBURIDE. [Concomitant]
     Active Substance: GLYBURIDE
  5. LABETALOL [Concomitant]
     Active Substance: LABETALOL\LABETALOL HYDROCHLORIDE
  6. HYDROCO [Concomitant]
  7. AFINITOR [Suspect]
     Active Substance: EVEROLIMUS
     Indication: METASTASIS
     Route: 048
     Dates: start: 20170519

REACTIONS (4)
  - Therapy cessation [None]
  - Diarrhoea [None]
  - Vomiting [None]
  - Dehydration [None]

NARRATIVE: CASE EVENT DATE: 20170627
